FAERS Safety Report 5910949-6 (Version None)
Quarter: 2008Q4

REPORT INFORMATION
  Report Type: 
  Country: None (occurrence: None)
  Receive Date: 20081007
  Receipt Date: 20080724
  Transmission Date: 20090506
  Serious: No
  Sender: FDA-Public Use
  Company Number: US-ASTRAZENECA-2008UW14499

PATIENT
  Age: 63 Year
  Sex: Female
  Weight: 83.9 kg

DRUGS (6)
  1. ARIMIDEX [Suspect]
     Indication: BREAST CANCER
     Route: 048
     Dates: start: 20080701
  2. CYMBALTA [Concomitant]
  3. ATENOLOL [Concomitant]
  4. CRESTOR [Concomitant]
     Route: 048
  5. ASPIRIN [Concomitant]
  6. METFORMIN HCL [Concomitant]

REACTIONS (3)
  - HOT FLUSH [None]
  - HYPERHIDROSIS [None]
  - OEDEMA [None]
